FAERS Safety Report 6292682-7 (Version None)
Quarter: 2009Q3

REPORT INFORMATION
  Report Type: 
  Country: None (occurrence: None)
  Receive Date: 20090731
  Receipt Date: 20090608
  Transmission Date: 20100115
  Serious: Yes (Other)
  Sender: FDA-Public Use
  Company Number: US-PURDUE-USA-2009-0039022

PATIENT
  Sex: Female

DRUGS (1)
  1. OXYCONTIN [Suspect]
     Indication: ANALGESIA
     Dosage: UNK
     Route: 048
     Dates: start: 19980807, end: 20021201

REACTIONS (16)
  - AMNESIA [None]
  - ANXIETY [None]
  - DECREASED APPETITE [None]
  - DEPRESSION [None]
  - DISTURBANCE IN ATTENTION [None]
  - DIZZINESS [None]
  - FORMICATION [None]
  - HALLUCINATION [None]
  - HOT FLUSH [None]
  - INSOMNIA [None]
  - MIGRAINE [None]
  - MYALGIA [None]
  - SUICIDAL IDEATION [None]
  - SYNCOPE [None]
  - TREMOR [None]
  - WITHDRAWAL SYNDROME [None]
